FAERS Safety Report 7103542-3 (Version None)
Quarter: 2010Q4

REPORT INFORMATION
  Report Type: 
  Country: None (occurrence: None)
  Receive Date: 20101115
  Receipt Date: 20101110
  Transmission Date: 20110411
  Serious: Yes (Life-Threatening, Other)
  Sender: FDA-Public Use
  Company Number: DE-BAYER-201046290GPV

PATIENT
  Age: 51 Year
  Sex: Female
  Weight: 135 kg

DRUGS (12)
  1. ACETYLSALICYLIC ACID SRT [Suspect]
     Indication: PRODUCT USED FOR UNKNOWN INDICATION
     Route: 048
     Dates: start: 20090322
  2. RASILEZ [Suspect]
     Indication: HYPERTENSION
     Route: 048
     Dates: start: 20090322
  3. EXFORGE [Suspect]
     Indication: PRODUCT USED FOR UNKNOWN INDICATION
     Dosage: AS USED: 160/10 MG
     Route: 048
     Dates: start: 20090322
  4. SIOFOR [Concomitant]
     Dates: start: 20090322
  5. JANUMET [Concomitant]
     Dates: start: 20090322
  6. METOPROLOL SUCCINATE [Concomitant]
     Dates: start: 20090322
  7. MOXONIDINE [Concomitant]
     Dates: start: 20090322
  8. CARMEN [Concomitant]
     Dates: start: 20090322
  9. CITALOPRAM [Concomitant]
     Dates: start: 20090322
  10. DIURETICS [Concomitant]
     Dates: start: 20090730
  11. ALPHA RECEPTOR BLOCKER [Concomitant]
     Dates: start: 20090730
  12. TORASEMIDE [Concomitant]
     Dates: start: 20090730

REACTIONS (3)
  - CEREBROVASCULAR ACCIDENT [None]
  - HAEMOGLOBIN DECREASED [None]
  - HEART RATE DECREASED [None]
